FAERS Safety Report 8292662-6 (Version None)
Quarter: 2012Q2

REPORT INFORMATION
  Report Type: 
  Country: None (occurrence: None)
  Receive Date: 20120417
  Receipt Date: 20120109
  Transmission Date: 20120825
  Serious: No
  Sender: FDA-Public Use
  Company Number: US-ASTRAZENECA-2012SE01253

PATIENT
  Age: 37 Year
  Sex: Female
  Weight: 69.9 kg

DRUGS (11)
  1. PROTONIX [Concomitant]
  2. NEXIUM [Suspect]
     Route: 048
  3. PRILOSEC [Suspect]
     Route: 048
  4. DEXILANT [Concomitant]
  5. VICODIN [Concomitant]
     Dosage: 5-500 MG, AS NEEDED
  6. PREVACID [Concomitant]
  7. PANTOPRAZOLE SODIUM [Concomitant]
  8. PROAIR HFA [Concomitant]
     Dosage: 180 MCG/ACT, 2 PUFFS 4 TIMES PER DAY AS NEEDED
  9. COUMADIN [Concomitant]
  10. ZOFRAN [Concomitant]
     Indication: NAUSEA
     Dosage: 4 MG, EVERY 4 HOURS AS NEEDED
  11. ATIVAN [Concomitant]

REACTIONS (12)
  - POLLAKIURIA [None]
  - DYSURIA [None]
  - DYSPEPSIA [None]
  - PHARYNGEAL OEDEMA [None]
  - CHEST PAIN [None]
  - DRUG INEFFECTIVE [None]
  - ANXIETY DISORDER [None]
  - PAIN IN EXTREMITY [None]
  - DRUG DOSE OMISSION [None]
  - ABDOMINAL PAIN UPPER [None]
  - DRUG HYPERSENSITIVITY [None]
  - NAUSEA [None]
